FAERS Safety Report 25281180 (Version 1)
Quarter: 2025Q2

REPORT INFORMATION
  Report Type: Spontaneous
  Country: CN (occurrence: CN)
  Receive Date: 20250508
  Receipt Date: 20250508
  Transmission Date: 20250716
  Serious: Yes (Hospitalization)
  Sender: ROCHE
  Company Number: CN-ROCHE-10000272641

PATIENT
  Age: 68 Year
  Sex: Female
  Weight: 56 kg

DRUGS (7)
  1. PERTUZUMAB [Suspect]
     Active Substance: PERTUZUMAB
     Indication: Breast cancer
     Route: 042
     Dates: start: 20250308, end: 20250308
  2. PERTUZUMAB [Suspect]
     Active Substance: PERTUZUMAB
     Indication: Lower limb fracture
  3. PERTUZUMAB [Suspect]
     Active Substance: PERTUZUMAB
     Indication: Type 2 diabetes mellitus
  4. HERCEPTIN [Suspect]
     Active Substance: TRASTUZUMAB
     Indication: Breast cancer
     Route: 042
     Dates: start: 20250308, end: 20250308
  5. PACLITAXEL [Suspect]
     Active Substance: PACLITAXEL
     Indication: Breast cancer
     Route: 042
     Dates: start: 20250308, end: 20250308
  6. PACLITAXEL [Suspect]
     Active Substance: PACLITAXEL
     Indication: Type 2 diabetes mellitus
  7. PACLITAXEL [Suspect]
     Active Substance: PACLITAXEL
     Indication: Lower limb fracture

REACTIONS (1)
  - Transaminases increased [Recovering/Resolving]

NARRATIVE: CASE EVENT DATE: 20250328
